FAERS Safety Report 21476880 (Version 1)
Quarter: 2022Q4

REPORT INFORMATION
  Report Type: Spontaneous
  Country: US (occurrence: None)
  Receive Date: 20221018
  Receipt Date: 20221018
  Transmission Date: 20230112
  Serious: No
  Sender: FDA-Public Use
  Company Number: None

PATIENT
  Age: 63 Year
  Sex: Male
  Weight: 51.71 kg

DRUGS (1)
  1. VANCOMYCIN HYDROCHLORIDE [Suspect]
     Active Substance: VANCOMYCIN HYDROCHLORIDE
     Dates: start: 20220512, end: 20220512

REACTIONS (7)
  - Burning sensation [None]
  - Drug hypersensitivity [None]
  - Pain in extremity [None]
  - Feeling hot [None]
  - Hyperhidrosis [None]
  - Dyspnoea [None]
  - Anaphylactic reaction [None]

NARRATIVE: CASE EVENT DATE: 20220512
